FAERS Safety Report 12788242 (Version 5)
Quarter: 2016Q4

REPORT INFORMATION
  Report Type: Report from Study
  Country: JP (occurrence: JP)
  Receive Date: 20160928
  Receipt Date: 20161231
  Transmission Date: 20170207
  Serious: Yes (Life-Threatening, Hospitalization, Disabling)
  Sender: FDA-Public Use
  Company Number: JP-ASTRAZENECA-2016SF02315

PATIENT
  Age: 79 Year
  Sex: Female
  Weight: 34 kg

DRUGS (18)
  1. TRAMCET [Concomitant]
     Active Substance: ACETAMINOPHEN\TRAMADOL
     Indication: BACK PAIN
     Dosage: AFTER BREAKFAST AND EVENING MEAL, 2 DOSAGE FORM TWO TIMES A DAY
     Route: 048
     Dates: start: 20160903
  2. CALONAL [Concomitant]
     Active Substance: ACETAMINOPHEN
     Indication: CHEST PAIN
     Dosage: 400.0MG UNKNOWN
     Route: 048
     Dates: start: 20160904, end: 20160904
  3. OXYCONTIN [Concomitant]
     Active Substance: OXYCODONE HYDROCHLORIDE
     Indication: CANCER PAIN
     Dosage: 10.0MG UNKNOWN
     Route: 048
     Dates: start: 20160719, end: 20160824
  4. OXINORM [Concomitant]
     Active Substance: OXYCODONE HYDROCHLORIDE
     Indication: CANCER PAIN
     Dosage: 2.5MG AS REQUIRED
     Route: 048
     Dates: start: 20160719, end: 20160824
  5. SOLDEM 3A [Concomitant]
     Active Substance: CARBOHYDRATES\POTASSIUM CHLORIDE\SODIUM CHLORIDE\SODIUM LACTATE
     Indication: HYPOPHAGIA
     Dosage: 500.0ML UNKNOWN
     Route: 041
     Dates: start: 20160903, end: 20160905
  6. TAGRISSO [Suspect]
     Active Substance: OSIMERTINIB
     Indication: NON-SMALL CELL LUNG CANCER
     Route: 048
     Dates: start: 20160811, end: 20160906
  7. PRIMPERAN [Concomitant]
     Active Substance: METOCLOPRAMIDE HYDROCHLORIDE
     Indication: VOMITING
     Dosage: 10.0MG UNKNOWN
     Route: 042
     Dates: start: 20160903, end: 20160903
  8. VICCILLIN [Concomitant]
     Active Substance: AMPICILLIN
     Indication: URINARY TRACT INFECTION
     Dosage: 2.0G UNKNOWN
     Route: 041
     Dates: start: 20160905, end: 20160908
  9. SEISHOKU [Concomitant]
     Active Substance: SODIUM CHLORIDE
     Indication: URINARY TRACT INFECTION
     Dosage: 100.0ML UNKNOWN
     Route: 040
     Dates: start: 20160905, end: 20160908
  10. LYRICA [Concomitant]
     Active Substance: PREGABALIN
     Indication: NEURALGIA
     Dosage: AFTER BREAKFAST AND EVENING MEAL, 150 MG TWO TIMES A DAY
     Route: 048
     Dates: start: 20160718, end: 20160830
  11. NEXIUM [Concomitant]
     Active Substance: ESOMEPRAZOLE MAGNESIUM
     Indication: GASTRIC ULCER
     Dosage: AFTER BREAKFAST, 20 MG EVERY DAY
     Route: 048
     Dates: start: 20160904
  12. VOLTAREN [Concomitant]
     Active Substance: DICLOFENAC SODIUM
     Indication: ANALGESIC THERAPY
     Dosage: AFTER BREAKFAST, 75 MG TWO TIMES A DAY
     Route: 048
     Dates: start: 20160527, end: 20160903
  13. LEVOFLOXACIN OD [Concomitant]
     Indication: URINARY TRACT INFECTION
     Dosage: AFTER LUNCH, 500 MG EVERY DAY
     Route: 048
     Dates: start: 20160829, end: 20160902
  14. FERROUS CITRATE NA [Concomitant]
     Active Substance: SODIUM FERROUS CITRATE
     Indication: IRON DEFICIENCY ANAEMIA
     Dosage: AFTER BREAKFAST AND EVENING MEAL, 100 MG THREE TIMES A DAY
     Route: 048
     Dates: start: 20160601, end: 20160903
  15. ACELIO [Concomitant]
     Active Substance: ACETAMINOPHEN
     Indication: CHEST PAIN
     Dosage: NUMBER OF SEPARATE DOSAGES UNKNOWN, 500 MG500.0MG UNKNOWN
     Route: 041
     Dates: start: 20160903, end: 20160905
  16. LANSOPRAZOLE. [Concomitant]
     Active Substance: LANSOPRAZOLE
     Indication: GASTRIC ULCER
     Dosage: AFTER BREAKFAST, 15 MG EVERY DAY
     Route: 048
     Dates: start: 20160527, end: 20160903
  17. SENNOSIDE [Concomitant]
     Active Substance: SENNOSIDES
     Indication: CONSTIPATION
     Dosage: BEFORE BEDTIME, 24 MG EVERY DAY
     Route: 048
     Dates: start: 20160531
  18. MAGMITT [Concomitant]
     Active Substance: MAGNESIUM OXIDE
     Indication: CONSTIPATION
     Dosage: AFTER EVERY MEAL, 990 MG THREE TIMES A DAY
     Route: 048
     Dates: start: 20160719, end: 20160828

REACTIONS (7)
  - Nausea [Recovered/Resolved]
  - Back pain [Not Recovered/Not Resolved]
  - Electrocardiogram QT prolonged [Not Recovered/Not Resolved]
  - Myocardial infarction [Not Recovered/Not Resolved]
  - Hypophagia [Recovered/Resolved]
  - Chest pain [Not Recovered/Not Resolved]
  - Urinary tract infection [Recovered/Resolved]

NARRATIVE: CASE EVENT DATE: 20160829
